FAERS Safety Report 6088994-2 (Version None)
Quarter: 2009Q1

REPORT INFORMATION
  Report Type: 
  Country: None (occurrence: None)
  Receive Date: 20090219
  Receipt Date: 20090209
  Transmission Date: 20090719
  Serious: Yes (Hospitalization)
  Sender: FDA-Public Use
  Company Number: 09P-229-0502869-00

PATIENT
  Sex: Male

DRUGS (1)
  1. SYNAGIS [Suspect]
     Dosage: 15 MG/KG INJECTION
     Dates: start: 20081211

REACTIONS (2)
  - FONTANELLE BULGING [None]
  - PYREXIA [None]
